FAERS Safety Report 5128132-3 (Version None)
Quarter: 2006Q4

REPORT INFORMATION
  Report Type: 
  Country: None (occurrence: None)
  Receive Date: 20061011
  Receipt Date: 20060921
  Transmission Date: 20070319
  Serious: Yes (Death)
  Sender: FDA-Public Use
  Company Number: 230666

PATIENT
  Age: 43 Year
  Sex: Female

DRUGS (4)
  1. HERCEPTIN [Suspect]
     Indication: BREAST CANCER METASTATIC
     Dosage: 6 MG/KG, Q3W
     Dates: start: 20060315
  2. CAPECITABINE (CAPECITABINE) [Concomitant]
  3. NAVELBINE [Concomitant]
  4. ROXITHROMYCIN (ROXITHROMYCIN) [Concomitant]

REACTIONS (11)
  - ANAPHYLACTIC REACTION [None]
  - ANXIETY [None]
  - CARDIAC ARREST [None]
  - CIRCULATORY COLLAPSE [None]
  - DRUG INEFFECTIVE [None]
  - FEELING HOT [None]
  - PALMAR-PLANTAR ERYTHRODYSAESTHESIA SYNDROME [None]
  - PARAESTHESIA [None]
  - PULMONARY OEDEMA [None]
  - PYREXIA [None]
  - TACHYCARDIA [None]
